FAERS Safety Report 12948666 (Version 1)
Quarter: 2016Q4

REPORT INFORMATION
  Report Type: Spontaneous
  Country: US (occurrence: US)
  Receive Date: 20161117
  Receipt Date: 20161117
  Transmission Date: 20170207
  Serious: Yes (Other)
  Sender: FDA-Public Use
  Company Number: US-RECORDATI RARE DISEASES-US-R13005-16-00290

PATIENT
  Sex: Female

DRUGS (2)
  1. PANHEMATIN [Suspect]
     Active Substance: HEMIN
     Indication: PRODUCT USED FOR UNKNOWN INDICATION
     Route: 042
  2. PANHEMATIN [Suspect]
     Active Substance: HEMIN
     Route: 042
     Dates: start: 20161109

REACTIONS (2)
  - Oropharyngeal pain [Recovered/Resolved]
  - Pharyngeal oedema [Recovered/Resolved]

NARRATIVE: CASE EVENT DATE: 20161109
